FAERS Safety Report 10673768 (Version 2)
Quarter: 2015Q1

REPORT INFORMATION
  Report Type: Spontaneous
  Country: US (occurrence: None)
  Receive Date: 20141222
  Receipt Date: 20150211
  Transmission Date: 20150720
  Serious: Yes (Hospitalization)
  Sender: FDA-Public Use
  Company Number: 2014MPI01644

PATIENT
  Age: 77 Year
  Sex: Female
  Weight: 62.1 kg

DRUGS (4)
  1. DOXORUBICIN(DOXORUBICIN)INJECTION [Suspect]
     Active Substance: DOXORUBICIN
     Indication: HODGKIN^S DISEASE
     Route: 042
     Dates: start: 20140908, end: 20141125
  2. VINBALSTIN(VINBLASTINE SULFATE)INJECTION [Suspect]
     Active Substance: VINBLASTINE
     Indication: HODGKIN^S DISEASE
     Route: 042
     Dates: start: 20140908, end: 20141125
  3. BRENTUXIMAB VEDOTIN (BRENTUXIMAB VEDOTIN) INJECTION [Suspect]
     Active Substance: BRENTUXIMAB VEDOTIN
     Indication: HODGKIN^S DISEASE
     Route: 042
     Dates: start: 20140908, end: 20141125
  4. DACARBAZINE(DARCARBAZINE) INJECTION [Suspect]
     Active Substance: DACARBAZINE
     Indication: HODGKIN^S DISEASE
     Route: 042
     Dates: start: 20140928, end: 20141125

REACTIONS (5)
  - Diarrhoea [None]
  - Asthenia [None]
  - Fatigue [None]
  - Dyspnoea [None]
  - Pancytopenia [None]

NARRATIVE: CASE EVENT DATE: 20141202
